FAERS Safety Report 16472675 (Version 1)
Quarter: 2019Q2

REPORT INFORMATION
  Report Type: Spontaneous
  Country: US (occurrence: US)
  Receive Date: 20190625
  Receipt Date: 20190625
  Transmission Date: 20190711
  Serious: Yes (Hospitalization, Other)
  Sender: FDA-Public Use
  Company Number: US-SA-2019SA168546

PATIENT
  Age: 63 Year
  Sex: Male

DRUGS (1)
  1. BCG FOR IMMUNOTHERAPY [Suspect]
     Active Substance: BACILLUS CALMETTE-GUERIN ANTIGEN, UNSPECIFIED SUBSTRAIN
     Indication: BLADDER CANCER
     Dosage: UNK

REACTIONS (8)
  - Scrotal pain [Recovered/Resolved]
  - Acute myocardial infarction [Unknown]
  - Scrotal haematoma [Recovered/Resolved]
  - Scrotal swelling [Recovered/Resolved]
  - Orchitis [Recovered/Resolved]
  - Scrotal abscess [Recovered/Resolved]
  - Epididymitis [Recovered/Resolved]
  - Abscess drainage [Recovered/Resolved]
